FAERS Safety Report 6782157-0 (Version None)
Quarter: 2010Q2

REPORT INFORMATION
  Report Type: 
  Country: None (occurrence: None)
  Receive Date: 20100621
  Receipt Date: 20100607
  Transmission Date: 20101027
  Serious: Yes (Other)
  Sender: FDA-Public Use
  Company Number: PHHY2010GB38675

PATIENT
  Age: 14 Year
  Sex: Male

DRUGS (5)
  1. OXCARBAZEPINE [Suspect]
     Indication: TEMPORAL LOBE EPILEPSY
     Dosage: 600 MG/DAY
  2. OXCARBAZEPINE [Interacting]
     Dosage: 1800 MG/DAY
  3. OXCARBAZEPINE [Interacting]
     Dosage: 2400 MG/DAY (28 MG/KG/DAY)
  4. DEHYDROEPIANDROSTERONE [Interacting]
     Dosage: UNK,UNK
     Route: 048
  5. HYDROCORTISONE [Interacting]
     Indication: GLUCOCORTICOIDS DECREASED
     Dosage: }22 MG/M2/DAY

REACTIONS (10)
  - ABDOMINAL DISCOMFORT [None]
  - BLOOD CORTICOTROPHIN INCREASED [None]
  - BLOOD CORTISOL ABNORMAL [None]
  - CONVULSION [None]
  - DRUG INTERACTION [None]
  - FATIGUE [None]
  - GLUCOCORTICOIDS DECREASED [None]
  - NAUSEA [None]
  - SKIN HYPERPIGMENTATION [None]
  - WEIGHT INCREASED [None]
